FAERS Safety Report 9314755 (Version 2)
Quarter: 2013Q2

REPORT INFORMATION
  Report Type: Spontaneous
  Country: BR (occurrence: BR)
  Receive Date: 20130529
  Receipt Date: 20130628
  Transmission Date: 20140414
  Serious: Yes (Death)
  Sender: FDA-Public Use
  Company Number: BR-PFIZER INC-2013122097

PATIENT
  Age: 51 Year
  Sex: Female

DRUGS (5)
  1. SUTENT [Suspect]
     Indication: GASTROINTESTINAL STROMAL TUMOUR
     Dosage: 50 MG, CYCLIC (4X2)
     Route: 048
     Dates: start: 20121129
  2. OMEPRAZOL [Concomitant]
  3. FUROSEMIDE [Concomitant]
     Indication: SWELLING
  4. BROMOPRIDE [Concomitant]
     Indication: NAUSEA
  5. DIPIRONE [Concomitant]

REACTIONS (9)
  - Disease progression [Fatal]
  - Gastrointestinal stromal tumour [Fatal]
  - Palmar-plantar erythrodysaesthesia syndrome [Not Recovered/Not Resolved]
  - Oral pain [Not Recovered/Not Resolved]
  - Tongue disorder [Not Recovered/Not Resolved]
  - Lip injury [Not Recovered/Not Resolved]
  - Tooth injury [Not Recovered/Not Resolved]
  - Vulvovaginal rash [Not Recovered/Not Resolved]
  - Haemorrhoids [Not Recovered/Not Resolved]
